FAERS Safety Report 6712836-2 (Version None)
Quarter: 2010Q2

REPORT INFORMATION
  Report Type: 
  Country: None (occurrence: None)
  Receive Date: 20100506
  Receipt Date: 20090824
  Transmission Date: 20101027
  Serious: No
  Sender: FDA-Public Use
  Company Number: A0803776A

PATIENT
  Age: 57 Year
  Sex: Female

DRUGS (2)
  1. AUGMENTIN '125' [Suspect]
     Indication: EAR INFECTION
     Dosage: 2000MG TWICE PER DAY
     Route: 048
     Dates: start: 20090701
  2. NASONEX [Concomitant]

REACTIONS (1)
  - DRUG INEFFECTIVE [None]
